FAERS Safety Report 17969537 (Version 10)
Quarter: 2021Q3

REPORT INFORMATION
  Report Type: Report from Study
  Country: PL (occurrence: PL)
  Receive Date: 20200701
  Receipt Date: 20210903
  Transmission Date: 20211014
  Serious: Yes (Hospitalization)
  Sender: FDA-Public Use
  Company Number: NVSC2020PL182610

PATIENT
  Age: 55 Year
  Sex: Male
  Weight: 72.3 kg

DRUGS (20)
  1. OFATUMUMAB [Suspect]
     Active Substance: OFATUMUMAB
     Indication: MULTIPLE SCLEROSIS RELAPSE
     Dosage: 1 DF, QW
     Route: 058
     Dates: start: 20190728
  2. SIMVACARD [Concomitant]
     Active Substance: SIMVASTATIN
     Indication: ISCHAEMIC HEART DISEASE PROPHYLAXIS
     Dosage: UNK
     Route: 065
     Dates: start: 20200914, end: 20200915
  3. MEROPENEM. [Concomitant]
     Active Substance: MEROPENEM
     Indication: URINARY TRACT INFECTION
     Dosage: UNK
     Route: 065
     Dates: start: 20200601, end: 20200701
  4. DOXAR [Concomitant]
     Indication: HYPERTROPHY
     Dosage: UNK
     Route: 065
     Dates: start: 20170401
  5. TRITTICO [Concomitant]
     Active Substance: TRAZODONE HYDROCHLORIDE
     Indication: MULTIPLE SCLEROSIS
  6. ACARD [Concomitant]
     Indication: ISCHAEMIC HEART DISEASE PROPHYLAXIS
     Dosage: UNK
     Route: 065
     Dates: start: 20191114
  7. RANLOSIN [Concomitant]
     Active Substance: TAMSULOSIN HYDROCHLORIDE
     Indication: HYPERTROPHY
     Dosage: UNK
     Route: 065
     Dates: start: 20170401
  8. BIOFUROKSYM [Concomitant]
     Active Substance: CEFUROXIME SODIUM
     Indication: URINARY TRACT INFECTION
     Dosage: UNK
     Route: 065
     Dates: start: 20200601, end: 20200701
  9. TRITTICO [Concomitant]
     Active Substance: TRAZODONE HYDROCHLORIDE
     Indication: DEPRESSION
     Dosage: UNK
     Route: 065
     Dates: start: 20200708
  10. PLAVIX [Concomitant]
     Active Substance: CLOPIDOGREL BISULFATE
     Indication: ISCHAEMIC HEART DISEASE PROPHYLAXIS
     Dosage: UNK
     Route: 065
     Dates: start: 20191114
  11. ZARANTA [Concomitant]
     Active Substance: ROSUVASTATIN CALCIUM
     Indication: ISCHAEMIC HEART DISEASE PROPHYLAXIS
     Dosage: UNK
     Route: 065
     Dates: start: 20191114, end: 20200913
  12. DEVIKAP [Concomitant]
     Indication: SUPPLEMENTATION THERAPY
     Dosage: UNK
     Route: 065
     Dates: start: 20170705
  13. OFATUMUMAB [Suspect]
     Active Substance: OFATUMUMAB
     Indication: MULTIPLE SCLEROSIS
     Dosage: 20 MG, Q4W
     Route: 058
     Dates: start: 20190722, end: 20200719
  14. VIREGYT K [Concomitant]
     Indication: PROPHYLAXIS
     Dosage: UNK
     Route: 065
     Dates: start: 20120101
  15. ZARANTA [Concomitant]
     Active Substance: ROSUVASTATIN CALCIUM
     Dosage: UNK
     Route: 065
     Dates: start: 20200916
  16. VITAMIN E [Concomitant]
     Active Substance: .ALPHA.-TOCOPHEROL
     Indication: PROPHYLAXIS
     Dosage: UNK
     Route: 065
     Dates: start: 20200508
  17. SIRDALUD [Concomitant]
     Active Substance: TIZANIDINE
     Indication: MUSCLE SPASTICITY
     Dosage: UNK
     Route: 065
     Dates: start: 20120101
  18. NOLPAZA [Concomitant]
     Active Substance: PANTOPRAZOLE SODIUM
     Indication: PROPHYLAXIS AGAINST GASTROINTESTINAL ULCER
     Dosage: UNK
     Route: 065
     Dates: start: 20191114
  19. BISOCARD [Concomitant]
     Active Substance: BISOPROLOL
     Indication: HYPERTENSION
     Dosage: UNK
     Route: 065
     Dates: start: 20191114
  20. ESTAZOLAM. [Concomitant]
     Active Substance: ESTAZOLAM
     Indication: DEPRESSION
     Dosage: UNK
     Route: 065
     Dates: start: 20200626, end: 20200707

REACTIONS (3)
  - Urinary tract infection [Recovered/Resolved]
  - Urinary tract infection [Recovered/Resolved]
  - Urinary tract infection [Recovered/Resolved]

NARRATIVE: CASE EVENT DATE: 20200626
